FAERS Safety Report 17036769 (Version 1)
Quarter: 2019Q4

REPORT INFORMATION
  Report Type: Spontaneous
  Country: US (occurrence: US)
  Receive Date: 20191015
  Receipt Date: 20191015
  Transmission Date: 20200122
  Serious: Yes (Hospitalization)
  Sender: FDA-Public Use
  Company Number: None

PATIENT
  Age: 49 Year
  Sex: Male
  Weight: 85.28 kg

DRUGS (1)
  1. WARFARIN [Suspect]
     Active Substance: WARFARIN
     Indication: AORTIC VALVE REPLACEMENT
     Dosage: ?          OTHER DOSE:10-15MG;?
     Route: 048
     Dates: start: 20190611, end: 20190904

REACTIONS (2)
  - Diarrhoea [None]
  - International normalised ratio abnormal [None]

NARRATIVE: CASE EVENT DATE: 20190904
